FAERS Safety Report 7925488-0 (Version None)
Quarter: 2011Q4

REPORT INFORMATION
  Report Type: 
  Country: None (occurrence: None)
  Receive Date: 20111118
  Receipt Date: 20110407
  Transmission Date: 20120403
  Serious: Yes (Other)
  Sender: FDA-Public Use
  Company Number: US-AMGEN-USASP2011014030

PATIENT
  Age: 55 Year
  Sex: Female

DRUGS (1)
  1. ENBREL [Suspect]
     Indication: RHEUMATOID ARTHRITIS
     Dosage: 25 MG, 2 TIMES/WK
     Dates: start: 20100831

REACTIONS (10)
  - INJECTION SITE RASH [None]
  - INJECTION SITE HAEMATOMA [None]
  - FEELING OF BODY TEMPERATURE CHANGE [None]
  - DIZZINESS [None]
  - EAR INFECTION [None]
  - PARAESTHESIA [None]
  - TACHYCARDIA [None]
  - REACTION TO PRESERVATIVES [None]
  - NASAL CONGESTION [None]
  - SINUSITIS [None]
